FAERS Safety Report 5975213-8 (Version None)
Quarter: 2008Q4

REPORT INFORMATION
  Report Type: 
  Country: None (occurrence: None)
  Receive Date: 20081128
  Receipt Date: 20081124
  Transmission Date: 20090506
  Serious: Yes (Hospitalization)
  Sender: FDA-Public Use
  Company Number: 20365

PATIENT
  Age: 74 Year
  Sex: Female
  Weight: 66 kg

DRUGS (2)
  1. CYTARABINE [Suspect]
     Indication: ACUTE MYELOID LEUKAEMIA
     Dosage: 33.7 MG QD SC
     Route: 058
     Dates: start: 20080820, end: 20080829
  2. CYTARABINE [Suspect]
     Indication: ACUTE MYELOID LEUKAEMIA
     Dosage: 34.2 MG QD SC
     Route: 058
     Dates: start: 20080722, end: 20080731

REACTIONS (2)
  - PANCYTOPENIA [None]
  - PYREXIA [None]
